FAERS Safety Report 21162683 (Version 1)
Quarter: 2022Q3

REPORT INFORMATION
  Report Type: Spontaneous
  Country: US (occurrence: None)
  Receive Date: 20220802
  Receipt Date: 20220802
  Transmission Date: 20221027
  Serious: Yes (Other)
  Sender: FDA-Public Use
  Company Number: None

PATIENT
  Age: 66 Year
  Sex: Female
  Weight: 43.7 kg

DRUGS (3)
  1. EVUSHELD [Suspect]
     Active Substance: CILGAVIMAB\TIXAGEVIMAB
     Indication: Prophylaxis
     Route: 030
     Dates: start: 20220729, end: 20220729
  2. TIXAGEVIMAB [Concomitant]
     Active Substance: TIXAGEVIMAB
     Dates: start: 20220729, end: 20220729
  3. CILGAVIMAB [Concomitant]
     Active Substance: CILGAVIMAB
     Dates: start: 20220729, end: 20220729

REACTIONS (4)
  - Flushing [None]
  - Dyspnoea [None]
  - Feeling hot [None]
  - Vision blurred [None]

NARRATIVE: CASE EVENT DATE: 20220729
